FAERS Safety Report 17603730 (Version 1)
Quarter: 2020Q1

REPORT INFORMATION
  Report Type: Spontaneous
  Country: IT (occurrence: IT)
  Receive Date: 20200331
  Receipt Date: 20200331
  Transmission Date: 20200409
  Serious: Yes (Hospitalization)
  Sender: FDA-Public Use
  Company Number: IT-TEVA-2020-IT-1212931

PATIENT
  Age: 89 Year
  Sex: Female

DRUGS (10)
  1. CARDURA 4 MG COMPRESSE [Concomitant]
     Route: 048
  2. SILDENAFIL. [Suspect]
     Active Substance: SILDENAFIL
     Indication: PULMONARY ARTERIAL HYPERTENSION
     Dosage: 1 DOSAGE FORMS
     Route: 048
     Dates: start: 20190101, end: 20200119
  3. ROCALTROL [Concomitant]
     Active Substance: CALCITRIOL
     Route: 048
  4. CLONIDINE. [Suspect]
     Active Substance: CLONIDINE
     Indication: HYPERTENSION
     Route: 062
     Dates: start: 20200110, end: 20200119
  5. LASIX [Suspect]
     Active Substance: FUROSEMIDE
     Indication: HYPERTENSION
     Dosage: 175 MG
     Route: 048
     Dates: start: 20190101, end: 20200119
  6. PEPTAZOL [Concomitant]
     Route: 048
  7. FERRO-GRAD [Concomitant]
     Active Substance: FERROUS SULFATE
     Route: 048
  8. ACETYLSALICYLIC ACID [Concomitant]
     Active Substance: ASPIRIN
     Route: 048
  9. TRAJENTA [Concomitant]
     Active Substance: LINAGLIPTIN
     Route: 048
  10. BINOCRIT [Concomitant]
     Active Substance: ERYTHROPOIETIN
     Route: 058

REACTIONS (3)
  - Dysarthria [Unknown]
  - Anuria [Unknown]
  - Hypotension [Unknown]

NARRATIVE: CASE EVENT DATE: 20200119
